FAERS Safety Report 9632525 (Version 2)
Quarter: 2014Q1

REPORT INFORMATION
  Report Type: Spontaneous
  Country: US (occurrence: US)
  Receive Date: 20131018
  Receipt Date: 20140306
  Transmission Date: 20141002
  Serious: Yes (Other)
  Sender: FDA-Public Use
  Company Number: US-BRISTOL-MYERS SQUIBB COMPANY-19567379

PATIENT
  Age: 59 Year
  Sex: Male
  Weight: 73.47 kg

DRUGS (10)
  1. BYETTA PEN DISPOSABLE [Suspect]
     Dates: start: 20120316, end: 201301
  2. JANUMET [Suspect]
     Indication: TYPE 2 DIABETES MELLITUS
     Dates: start: 20120212, end: 201305
  3. LISINOPRIL + HCTZ [Concomitant]
     Dosage: 1DF: 25-20MG
     Route: 048
  4. VYTORIN [Concomitant]
     Dosage: TABS
     Route: 048
  5. LANTUS [Concomitant]
     Dosage: LANTUS SOLOSTAR PEN 100 UNITS/ML SOLUTION
     Route: 058
  6. KLOR-CON [Concomitant]
     Route: 048
  7. NEXIUM [Concomitant]
     Dosage: CAPS
     Route: 048
  8. NEOSPORIN [Concomitant]
     Dosage: 0.025 MG-1.75 MG-10000 UNITS/ML SOLUTION,
     Route: 047
  9. JANUMET [Concomitant]
     Dosage: 1DF: 1000 MG-50MG TABLET
     Route: 048
  10. VYTORIN [Concomitant]
     Dosage: 1DF: 10-40MG

REACTIONS (1)
  - Pancreatic carcinoma [Unknown]
